FAERS Safety Report 7421713-3 (Version None)
Quarter: 2011Q2

REPORT INFORMATION
  Report Type: 
  Country: None (occurrence: None)
  Receive Date: 20110418
  Receipt Date: 20101104
  Transmission Date: 20111010
  Serious: Yes (Hospitalization)
  Sender: FDA-Public Use
  Company Number: US-BAYER-201023005NA

PATIENT
  Age: 34 Year
  Sex: Female
  Weight: 107 kg

DRUGS (27)
  1. AZOL [Concomitant]
     Dates: start: 20100101
  2. VICODIN [Concomitant]
  3. OCELLA [Suspect]
     Indication: CONTRACEPTION
     Dates: start: 20080701, end: 20090901
  4. XANAX [Concomitant]
  5. HYOSCYAMINE [Concomitant]
  6. NAPROXEN (ALEVE) [Concomitant]
  7. LEXAPRO [Concomitant]
     Dates: start: 20090101
  8. PRAVASTATIN [Concomitant]
     Dates: start: 20100101
  9. PHENERGAN HCL [Concomitant]
  10. HYDROCODONE [Concomitant]
     Dosage: 10 MG, UNK
     Dates: start: 20070101
  11. PHENERGAN HCL [Concomitant]
  12. CIPRO [Concomitant]
     Dosage: UNK
     Dates: start: 20070101
  13. ANTACIDS [Concomitant]
     Dosage: UNK
     Dates: start: 20070201
  14. MIRALAX [Concomitant]
     Dosage: UNK
     Dates: start: 20070201
  15. FLUOXETINE [Concomitant]
  16. YASMIN [Suspect]
     Indication: CONTRACEPTION
     Route: 048
     Dates: start: 20020101, end: 20080601
  17. OCELLA [Suspect]
     Indication: PREMENSTRUAL SYNDROME
  18. NSAID'S [Concomitant]
  19. LASIX [Concomitant]
  20. YASMIN [Suspect]
     Indication: PREMENSTRUAL SYNDROME
  21. GENERAL NUTRIENTS [Concomitant]
  22. HYDROCODONE [Concomitant]
     Dosage: 650 MG, UNK
  23. AMBIEN [Concomitant]
     Dates: start: 20080101
  24. PULMICORT [Concomitant]
  25. ELAVIL [Concomitant]
  26. PREVPAC [Concomitant]
     Dosage: UNK
     Dates: start: 20060101
  27. BISACODYL [Concomitant]
     Dosage: UNK
     Dates: start: 20070201

REACTIONS (7)
  - PERITONITIS [None]
  - ABDOMINAL PAIN [None]
  - CHOLELITHIASIS [None]
  - VOMITING [None]
  - KELOID SCAR [None]
  - CHOLECYSTITIS CHRONIC [None]
  - NAUSEA [None]
